FAERS Safety Report 4270934-X (Version None)
Quarter: 2004Q1

REPORT INFORMATION
  Report Type: 
  Country: None (occurrence: None)
  Receive Date: 20040113
  Receipt Date: 20031224
  Transmission Date: 20041129
  Serious: Yes (Death, Other)
  Sender: FDA-Public Use
  Company Number: 2003IC000639

PATIENT
  Age: 63 Year
  Sex: Male

DRUGS (11)
  1. FLUOROURACIL [Suspect]
     Indication: OESOPHAGEAL CARCINOMA
     Dosage: 1 GM; INTRAVENOUS; 725 MG; INTRAVENOUS
     Route: 042
     Dates: start: 20011205, end: 20011209
  2. FLUOROURACIL [Suspect]
     Indication: OESOPHAGEAL CARCINOMA
     Dosage: 1 GM; INTRAVENOUS; 725 MG; INTRAVENOUS
     Route: 042
     Dates: start: 20020116, end: 20020120
  3. AQUPLA (NEDAPLATIN) [Suspect]
     Indication: OESOPHAGEAL CARCINOMA
     Dosage: 185 MG; INTRAVENOUS; 145 MG; INTRAVENOUS
     Route: 042
     Dates: start: 20011210, end: 20011210
  4. AQUPLA (NEDAPLATIN) [Suspect]
     Indication: OESOPHAGEAL CARCINOMA
     Dosage: 185 MG; INTRAVENOUS; 145 MG; INTRAVENOUS
     Route: 042
     Dates: start: 20020121, end: 20020121
  5. GASTER [Concomitant]
  6. KYTRIL [Concomitant]
  7. ELEMENMIC [Concomitant]
  8. VITAMIN CAP [Concomitant]
  9. PONTAL [Concomitant]
  10. TRANSAMIN [Concomitant]
  11. ULGUT [Concomitant]

REACTIONS (6)
  - INTERSTITIAL LUNG DISEASE [None]
  - PLATELET COUNT DECREASED [None]
  - PLEURAL EFFUSION [None]
  - RADIATION PNEUMONITIS [None]
  - RECURRENT CANCER [None]
  - STREPTOCOCCAL INFECTION [None]
